FAERS Safety Report 13950019 (Version 2)
Quarter: 2017Q3

REPORT INFORMATION
  Report Type: Spontaneous
  Country: CN (occurrence: CN)
  Receive Date: 20170908
  Receipt Date: 20170921
  Transmission Date: 20171128
  Serious: Yes (Other)
  Sender: FDA-Public Use
  Company Number: CN-BAYER-2017-166780

PATIENT
  Sex: Female

DRUGS (1)
  1. YAZ [Suspect]
     Active Substance: DROSPIRENONE\ETHINYL ESTRADIOL
     Indication: ENDOMETRIAL DISORDER
     Dosage: UNK
     Route: 048
     Dates: start: 201708

REACTIONS (4)
  - Off label use [None]
  - Product use in unapproved indication [None]
  - Abortion induced incomplete [None]
  - Inappropriate schedule of drug administration [None]

NARRATIVE: CASE EVENT DATE: 201708
